FAERS Safety Report 6120829-1 (Version None)
Quarter: 2009Q1

REPORT INFORMATION
  Report Type: 
  Country: None (occurrence: None)
  Receive Date: 20090317
  Receipt Date: 20090309
  Transmission Date: 20090719
  Serious: Yes (Hospitalization, Other)
  Sender: FDA-Public Use
  Company Number: GB-ROCHE-620131

PATIENT
  Age: 9 Year
  Sex: Male

DRUGS (21)
  1. MYCOPHENOLATE MOFETIL [Suspect]
     Route: 065
  2. NELFINAVIR [Suspect]
     Indication: ANTIRETROVIRAL THERAPY
     Route: 065
  3. NELFINAVIR [Suspect]
     Dosage: RESTARTED
     Route: 065
  4. CO-TRIMOXAZOLE [Suspect]
     Indication: ANTIRETROVIRAL THERAPY
     Route: 065
  5. CO-TRIMOXAZOLE [Suspect]
     Route: 065
  6. LAMIVUDINE [Suspect]
     Indication: ANTIRETROVIRAL THERAPY
     Route: 065
  7. LAMIVUDINE [Suspect]
     Dosage: RESTARTED
     Route: 065
  8. LAMIVUDINE [Suspect]
     Route: 065
  9. LAMIVUDINE [Suspect]
     Route: 065
  10. EFAVIRENZ [Suspect]
     Indication: ANTIRETROVIRAL THERAPY
     Route: 065
  11. EFAVIRENZ [Suspect]
     Dosage: RESTARTED
     Route: 065
  12. DIDANOSINE [Suspect]
     Indication: ANTIRETROVIRAL THERAPY
     Route: 065
  13. DIDANOSINE [Suspect]
     Route: 065
  14. ZIDOVUDINE [Suspect]
     Indication: ANTIRETROVIRAL THERAPY
     Route: 065
  15. ZIDOVUDINE [Suspect]
     Route: 065
  16. ZIDOVUDINE [Suspect]
     Route: 065
  17. ZIDOVUDINE [Suspect]
     Route: 065
  18. ABACAVIR [Suspect]
     Indication: ANTIRETROVIRAL THERAPY
     Route: 065
  19. RALTEGRAVIR [Suspect]
     Route: 065
  20. SIROLIMUS [Suspect]
     Route: 065
  21. PREDNISOLONE [Suspect]
     Route: 065

REACTIONS (14)
  - ACUTE HEPATIC FAILURE [None]
  - CACHEXIA [None]
  - DRUG TOXICITY [None]
  - GRAFT DYSFUNCTION [None]
  - HEPATIC ENCEPHALOPATHY [None]
  - HEPATIC FUNCTION ABNORMAL [None]
  - HYPERLIPIDAEMIA [None]
  - HYPERTENSION [None]
  - LYMPHADENOPATHY [None]
  - MYOPATHY [None]
  - PHARYNGITIS [None]
  - RASH [None]
  - RENAL IMPAIRMENT [None]
  - TRANSPLANT REJECTION [None]
